FAERS Safety Report 7955232-2 (Version None)
Quarter: 2011Q4

REPORT INFORMATION
  Report Type: 
  Country: None (occurrence: None)
  Receive Date: 20111202
  Receipt Date: 20111123
  Transmission Date: 20120403
  Serious: Yes (Hospitalization)
  Sender: FDA-Public Use
  Company Number: DE-NAPPMUNDI-DEU-2011-0008078

PATIENT
  Sex: Female

DRUGS (16)
  1. OXYCODONE HCL [Suspect]
     Dosage: 5 MG, BID
  2. OXYCODONE HCL [Suspect]
     Dosage: 30 MG, SEE TEXT
     Route: 048
     Dates: start: 20110419, end: 20110505
  3. OXYCODONE HCL [Suspect]
     Dosage: 35 MG, SEE TEXT
     Dates: start: 20110418, end: 20110418
  4. OXYCODONE HCL [Suspect]
     Dosage: 50 MG, SEE TEXT
     Route: 048
     Dates: start: 20110525, end: 20111114
  5. OXYCODONE HCL [Suspect]
     Dosage: 40 MG, SEE TEXT
     Dates: start: 20110507, end: 20110523
  6. OXYCODONE HCL [Suspect]
     Dosage: 35 MG, SEE TEXT
     Route: 048
     Dates: start: 20110314, end: 20110314
  7. OXYCODONE HCL [Suspect]
     Dosage: 35 MG, SEE TEXT
     Route: 048
     Dates: start: 20110506, end: 20110506
  8. OXYCODONE HCL [Suspect]
     Dosage: 40 MG, SEE TEXT
     Route: 048
     Dates: start: 20110315, end: 20110315
  9. OXYCODONE HCL [Suspect]
     Dosage: 30 MG, SEE TEXT
     Route: 048
     Dates: start: 20110216, end: 20110313
  10. OXYCODONE HCL [Suspect]
     Dosage: 10 MG, SEE TEXT
     Route: 048
     Dates: start: 20110209, end: 20110214
  11. RAMIPRIL [Concomitant]
     Dosage: 5 MG, DAILY
  12. OXYCODONE HCL [Suspect]
     Dosage: 20 MG, SEE TEXT
     Route: 048
     Dates: start: 20110416, end: 20110417
  13. OXYCODONE HCL [Suspect]
     Indication: RESTLESS LEGS SYNDROME
     Dosage: 20 MG, UNK
  14. OXYCODONE HCL [Suspect]
     Indication: RESTLESS LEGS SYNDROME
     Dosage: 25 MG, SEE TEXT
     Route: 048
     Dates: start: 20111115, end: 20111115
  15. OXYCODONE HCL [Suspect]
     Dosage: 45 MG, SEE TEXT
     Route: 048
     Dates: start: 20110524, end: 20110524
  16. OXYCODONE HCL [Suspect]
     Dosage: 20 MG, SEE TEXT
     Route: 048
     Dates: start: 20110215, end: 20110215

REACTIONS (1)
  - FAECALOMA [None]
